FAERS Safety Report 6438057-9 (Version None)
Quarter: 2009Q4

REPORT INFORMATION
  Report Type: 
  Country: None (occurrence: None)
  Receive Date: 20091112
  Receipt Date: 20091106
  Transmission Date: 20100525
  Serious: Yes (Death)
  Sender: FDA-Public Use
  Company Number: JP-BAYER-200914255BYL

PATIENT
  Age: 86 Year
  Sex: Male
  Weight: 68 kg

DRUGS (11)
  1. CIPROXAN-I.V. [Suspect]
     Indication: PNEUMONIA
     Dosage: TOTAL DAILY DOSE: 600 MG  UNIT DOSE: 300 MG
     Route: 041
     Dates: start: 20080718, end: 20080719
  2. CIPROXAN-I.V. [Suspect]
     Dosage: TOTAL DAILY DOSE: 300 MG  UNIT DOSE: 300 MG
     Route: 041
     Dates: start: 20080720, end: 20080720
  3. SEISHOKU [Concomitant]
     Dosage: TOTAL DAILY DOSE: 200 ML
     Route: 041
     Dates: start: 20080718, end: 20080719
  4. SEISHOKU [Concomitant]
     Dosage: TOTAL DAILY DOSE: 100 ML
     Route: 041
     Dates: start: 20080720, end: 20080720
  5. MEROPEN [Concomitant]
     Indication: PNEUMONIA
     Dosage: TOTAL DAILY DOSE: 0.5 G
     Route: 042
     Dates: start: 20080720, end: 20080720
  6. LACTEC [Concomitant]
     Dosage: TOTAL DAILY DOSE: 500 ML
     Route: 042
     Dates: start: 20080718, end: 20080719
  7. KAKODIN [Concomitant]
     Dosage: TOTAL DAILY DOSE: 200 ML
     Route: 042
     Dates: start: 20080719, end: 20080720
  8. TWINPAL [Concomitant]
     Dosage: TOTAL DAILY DOSE: 500 ML
     Route: 042
     Dates: start: 20080720, end: 20080720
  9. TWINPAL [Concomitant]
     Dosage: TOTAL DAILY DOSE: 1000 ML
     Route: 042
     Dates: start: 20080719, end: 20080719
  10. REMINARON [Concomitant]
     Dosage: TOTAL DAILY DOSE: 1500 MG
     Route: 042
     Dates: start: 20080720, end: 20080720
  11. HICALIQ RF [Concomitant]
     Dosage: TOTAL DAILY DOSE: 500 ML
     Route: 042
     Dates: start: 20080720, end: 20080720

REACTIONS (3)
  - RENAL FAILURE ACUTE [None]
  - RHABDOMYOLYSIS [None]
  - SHOCK [None]
